FAERS Safety Report 8562979 (Version 2)
Quarter: 2012Q4

REPORT INFORMATION
  Report Type: 
  Country: US (occurrence: US)
  Receive Date: 20120515
  Receipt Date: 20121015
  Transmission Date: 20130627
  Serious: Yes (Hospitalization)
  Sender: FDA-Public Use
  Company Number: US-BAYER-2012-046865

PATIENT
  Age: 22 Year
  Sex: Female
  Weight: 72.56 kg

DRUGS (7)
  1. YAZ [Suspect]
     Indication: CONTRACEPTION
     Dosage: UNK
     Dates: start: 2006, end: 2008
  2. YAZ [Suspect]
     Indication: ACNE
  3. YAZ [Suspect]
     Indication: PREMENSTRUAL SYNDROME
  4. YASMIN [Suspect]
     Indication: CONTRACEPTION
     Dosage: UNK
     Dates: start: 2003, end: 2005
  5. YASMIN [Suspect]
     Indication: ACNE
  6. YASMIN [Suspect]
     Indication: PREMENSTRUAL SYNDROME
  7. ANTI-ASTHMATICS [Concomitant]

REACTIONS (8)
  - Gallbladder injury [None]
  - Kidney infection [None]
  - Injury [None]
  - Pain [None]
  - General physical health deterioration [None]
  - General physical health deterioration [None]
  - Anxiety [None]
  - Emotional distress [None]
